FAERS Safety Report 23096490 (Version 4)
Quarter: 2023Q4

REPORT INFORMATION
  Report Type: Spontaneous
  Country: US (occurrence: US)
  Receive Date: 20231023
  Receipt Date: 20231128
  Transmission Date: 20240109
  Serious: Yes (Other)
  Sender: FDA-Public Use
  Company Number: US-PFIZER INC-202300334467

PATIENT
  Age: 80 Year
  Sex: Female
  Weight: 67.12 kg

DRUGS (2)
  1. IBRANCE [Suspect]
     Active Substance: PALBOCICLIB
     Indication: Breast cancer female
     Dosage: 125MG ONCE DAILY FOR 21 DAYS THEN OFF 7 DAY
     Route: 048
     Dates: start: 20231021
  2. ANASTROZOLE [Concomitant]
     Active Substance: ANASTROZOLE
     Dosage: 1 MG
     Dates: start: 202304

REACTIONS (3)
  - Deafness [Unknown]
  - Hypoacusis [Unknown]
  - Condition aggravated [Unknown]
